FAERS Safety Report 15074371 (Version 1)
Quarter: 2018Q2

REPORT INFORMATION
  Report Type: Spontaneous
  Country: US (occurrence: US)
  Receive Date: 20180602
  Receipt Date: 20180602
  Transmission Date: 20180711
  Serious: Yes (Hospitalization)
  Sender: FDA-Public Use
  Company Number: None

PATIENT
  Age: 76 Year
  Sex: Male
  Weight: 78.2 kg

DRUGS (1)
  1. TEMOZOLOMIDE. [Suspect]
     Active Substance: TEMOZOLOMIDE
     Dates: end: 20180519

REACTIONS (4)
  - Varicella zoster virus infection [None]
  - Facial paralysis [None]
  - Drug intolerance [None]
  - Arrhythmia [None]

NARRATIVE: CASE EVENT DATE: 20180520
